FAERS Safety Report 10043485 (Version 1)
Quarter: 2014Q1

REPORT INFORMATION
  Report Type: Spontaneous
  Country: US (occurrence: None)
  Receive Date: 20140327
  Receipt Date: 20140327
  Transmission Date: 20141002
  Serious: Yes (Other)
  Sender: FDA-Public Use
  Company Number: None

PATIENT
  Age: 49 Year
  Sex: Female
  Weight: 85.73 kg

DRUGS (9)
  1. HUMIRA [Suspect]
     Indication: CROHN^S DISEASE
     Dosage: 1 PEN, EVERY OTHER WEEK, SUBCUTANEOUS
     Route: 058
     Dates: start: 20130619, end: 20131216
  2. AZATHIOPRINE [Concomitant]
  3. PROPRANOLOL [Concomitant]
  4. PROTRIPTYLINE [Concomitant]
  5. VALPROIC ACID [Concomitant]
  6. BALSALAZIDE [Concomitant]
  7. MESALAMINE [Concomitant]
  8. MAGNESIUM OXIDE [Concomitant]
  9. MIRALAX [Concomitant]

REACTIONS (1)
  - Multiple sclerosis [None]
